FAERS Safety Report 5403066-5 (Version None)
Quarter: 2007Q3

REPORT INFORMATION
  Report Type: 
  Country: None (occurrence: None)
  Receive Date: 20070801
  Receipt Date: 20070730
  Transmission Date: 20080115
  Serious: Yes (Death, Life-Threatening, Other)
  Sender: FDA-Public Use
  Company Number: DK-SANOFI-SYNTHELABO-F01200700938

PATIENT

DRUGS (2)
  1. CAPECITABINE [Suspect]
     Dosage: TWICE DAILY DAYS 1-14 OF A 21 DAY CYCLE
     Route: 048
  2. OXALIPLATIN [Suspect]
     Indication: COLORECTAL CANCER
     Route: 042

REACTIONS (4)
  - MYOCARDIAL INFARCTION [None]
  - NEUTROPENIA [None]
  - PALMAR-PLANTAR ERYTHRODYSAESTHESIA SYNDROME [None]
  - THROMBOCYTOPENIA [None]
